FAERS Safety Report 23923347 (Version 1)
Quarter: 2024Q2

REPORT INFORMATION
  Report Type: Spontaneous
  Country: GR (occurrence: GR)
  Receive Date: 20240531
  Receipt Date: 20240531
  Transmission Date: 20240716
  Serious: Yes (Hospitalization, Other)
  Sender: FDA-Public Use
  Company Number: GR-862174955-ML2024-03210

PATIENT
  Age: 46 Year
  Sex: Male

DRUGS (2)
  1. AMOXICILLIN\CLAVULANIC ACID [Suspect]
     Active Substance: AMOXICILLIN\CLAVULANIC ACID
     Indication: Product used for unknown indication
  2. CREATINE [Suspect]
     Active Substance: CREATINE
     Indication: Muscle hypertrophy

REACTIONS (2)
  - Autoimmune hepatitis [Recovering/Resolving]
  - Subacute hepatic failure [Recovering/Resolving]
